FAERS Safety Report 15526182 (Version 2)
Quarter: 2019Q1

REPORT INFORMATION
  Report Type: Spontaneous
  Country: US (occurrence: US)
  Receive Date: 20181018
  Receipt Date: 20190111
  Transmission Date: 20190417
  Serious: Yes (Hospitalization, Other)
  Sender: FDA-Public Use
  Company Number: US-SA-2018SA285298

PATIENT
  Age: 72 Year
  Sex: Female

DRUGS (2)
  1. DUPIXENT [Suspect]
     Active Substance: DUPILUMAB
     Indication: DERMATITIS ATOPIC
     Dosage: 2 DF, 1X
     Route: 058
     Dates: start: 20180722, end: 20180722
  2. DUPIXENT [Suspect]
     Active Substance: DUPILUMAB
     Dosage: UNK MG
     Dates: start: 20180911

REACTIONS (20)
  - Sepsis [Unknown]
  - Weight decreased [Unknown]
  - Disorientation [Unknown]
  - Mental status changes [Unknown]
  - Systemic inflammatory response syndrome [Unknown]
  - Infection [Unknown]
  - Hallucination [Unknown]
  - Time perception altered [Unknown]
  - Cystitis [Unknown]
  - Loss of personal independence in daily activities [Unknown]
  - Balance disorder [Not Recovered/Not Resolved]
  - Feeding disorder [Unknown]
  - Asthenia [Unknown]
  - Gait disturbance [Unknown]
  - Thinking abnormal [Not Recovered/Not Resolved]
  - Cerebrovascular accident [Unknown]
  - Abdominal distension [Unknown]
  - Abdominal pain [Unknown]
  - Memory impairment [Not Recovered/Not Resolved]
  - Mobility decreased [Unknown]

NARRATIVE: CASE EVENT DATE: 20180912
